FAERS Safety Report 5216685-6 (Version None)
Quarter: 2006Q4

REPORT INFORMATION
  Report Type: 
  Country: None (occurrence: None)
  Receive Date: 20061130
  Receipt Date: 20060411
  Transmission Date: 20070319
  Serious: Yes (Other)
  Sender: FDA-Public Use
  Company Number: US200604002044

PATIENT
  Age: 54 Year
  Sex: Male
  Weight: 105.2 kg

DRUGS (6)
  1. ZYPREXA [Suspect]
     Indication: SCHIZOPHRENIA, PARANOID TYPE
     Dosage: SEE IMAGE
     Route: 048
     Dates: start: 19990901
  2. ZYPREXA [Suspect]
     Dosage: 2.5 MG UNK ORAL
     Route: 048
     Dates: start: 20051201
  3. BENICAR USA (OLMESARTAN MEDOXOMIL) [Concomitant]
  4. TOPROL-XL [Concomitant]
  5. DIVALPROEX SODIUM [Concomitant]
  6. DOXEPIN HCL [Concomitant]

REACTIONS (5)
  - DEPRESSION [None]
  - DIABETES MELLITUS [None]
  - FOOD CRAVING [None]
  - GAIT DISTURBANCE [None]
  - WEIGHT INCREASED [None]
